FAERS Safety Report 25329542 (Version 4)
Quarter: 2025Q3

REPORT INFORMATION
  Report Type: Report from Study
  Country: US (occurrence: US)
  Receive Date: 20250519
  Receipt Date: 20250926
  Transmission Date: 20251021
  Serious: No
  Sender: SUNOVION
  Company Number: US-SUMITOMO PHARMA SWITZERLAND GMBH-2025SPA005135

PATIENT
  Age: 80 Year
  Sex: Male

DRUGS (8)
  1. ORGOVYX [Suspect]
     Active Substance: RELUGOLIX
     Indication: Prostate cancer
     Dosage: 360 MG, SINGLE
     Route: 048
     Dates: start: 20250218, end: 20250218
  2. ORGOVYX [Suspect]
     Active Substance: RELUGOLIX
     Dosage: 120 MG, QD
     Route: 048
     Dates: start: 20250219
  3. JARDIANCE [Concomitant]
     Active Substance: EMPAGLIFLOZIN
  4. LEVOTHYROXINE [Concomitant]
     Active Substance: LEVOTHYROXINE
  5. OMEPRAZOLE [Concomitant]
     Active Substance: OMEPRAZOLE
  6. VITAMIN D [Concomitant]
     Active Substance: VITAMIN D NOS
  7. NIFEDIPINE [Concomitant]
     Active Substance: NIFEDIPINE
  8. NEBIVOLOL [Concomitant]
     Active Substance: NEBIVOLOL

REACTIONS (8)
  - Tremor [Unknown]
  - Joint swelling [Unknown]
  - Nasopharyngitis [Unknown]
  - Chills [Unknown]
  - Peripheral swelling [Unknown]
  - Hot flush [Not Recovered/Not Resolved]
  - Bone pain [Unknown]
  - Product dose omission issue [Recovered/Resolved]
